FAERS Safety Report 5813246-2 (Version None)
Quarter: 2008Q3

REPORT INFORMATION
  Report Type: 
  Country: None (occurrence: None)
  Receive Date: 20080715
  Receipt Date: 20080715
  Transmission Date: 20090109
  Serious: Yes (Hospitalization)
  Sender: FDA-Public Use
  Company Number: None

PATIENT
  Age: 65 Year
  Sex: Male
  Weight: 109.7 kg

DRUGS (2)
  1. MOXIFLOXACIN HCL [Suspect]
     Indication: CELLULITIS
     Dosage: 400 MG EVERY DAY PO
     Route: 048
     Dates: start: 20080616, end: 20080623
  2. PIPERACILLIN AND TAZOBACTAM [Suspect]
     Dosage: 2.25 GM QID IV
     Route: 042
     Dates: start: 20080531, end: 20080613

REACTIONS (3)
  - CARDIAC FAILURE CONGESTIVE [None]
  - CLOSTRIDIUM DIFFICILE COLITIS [None]
  - CONDITION AGGRAVATED [None]
